FAERS Safety Report 5916448-X (Version None)
Quarter: 2008Q4

REPORT INFORMATION
  Report Type: 
  Country: None (occurrence: None)
  Receive Date: 20081013
  Receipt Date: 20081008
  Transmission Date: 20090506
  Serious: Yes (Death, Other)
  Sender: FDA-Public Use
  Company Number: JP-AVENTIS-200812696JP

PATIENT
  Age: 81 Year
  Sex: Female
  Weight: 40 kg

DRUGS (2)
  1. TAXOTERE [Suspect]
     Route: 041
     Dates: start: 20080722, end: 20080722
  2. AQUPLA [Suspect]
     Route: 041
     Dates: start: 20080722, end: 20080722

REACTIONS (4)
  - NAUSEA [None]
  - NEUTROPHIL COUNT DECREASED [None]
  - PULMONARY FUNCTION TEST DECREASED [None]
  - SEPSIS [None]
